FAERS Safety Report 4456546-3 (Version None)
Quarter: 2004Q3

REPORT INFORMATION
  Report Type: 
  Country: None (occurrence: None)
  Receive Date: 20040921
  Receipt Date: 20040908
  Transmission Date: 20050211
  Serious: Yes (Death, Life-Threatening, Hospitalization, Disabling, Other)
  Sender: FDA-Public Use
  Company Number: 2003152626IE

PATIENT
  Age: 62 Year
  Sex: Male

DRUGS (9)
  1. GENOTROPIN [Suspect]
     Indication: HYPOPITUITARISM
     Dosage: 0.4 MG, QD
     Dates: start: 20020313, end: 20030319
  2. LIPITOR [Concomitant]
  3. ATENOLOL [Concomitant]
  4. PERINDOPRIL (PERINDOPRIL) [Concomitant]
  5. PLAVIX [Concomitant]
  6. HYDROCORTISONE [Concomitant]
  7. ACETYLSALICYLIC ACID [Concomitant]
  8. SUSTANON (TESTERONE ISOCAPROATE, TESTOSTERONE CAPRINOYLACETATE, TESTOS [Concomitant]
  9. ANDROPATCH (TESTOSTERONE) [Concomitant]

REACTIONS (9)
  - ARTHRALGIA [None]
  - ASTHENIA [None]
  - CEREBRAL HAEMORRHAGE [None]
  - HAEMATOMA [None]
  - METASTASES TO CENTRAL NERVOUS SYSTEM [None]
  - METASTASES TO SPINE [None]
  - NAUSEA [None]
  - NEOPLASM RECURRENCE [None]
  - SPINAL CORD COMPRESSION [None]
